FAERS Safety Report 7926903-9 (Version None)
Quarter: 2011Q4

REPORT INFORMATION
  Report Type: 
  Country: None (occurrence: None)
  Receive Date: 20111118
  Receipt Date: 20111111
  Transmission Date: 20120403
  Serious: Yes (Other)
  Sender: FDA-Public Use
  Company Number: GB-PFIZER INC-2011276447

PATIENT
  Age: 70 Year
  Sex: Female

DRUGS (2)
  1. SILDENAFIL CITRATE [Suspect]
     Indication: PULMONARY ARTERIAL HYPERTENSION
     Dosage: 20 MG, 3X/DAY
  2. SILDENAFIL CITRATE [Suspect]
     Dosage: 50 MG, 3X/DAY

REACTIONS (1)
  - HYPOMANIA [None]
